FAERS Safety Report 6998506-4 (Version None)
Quarter: 2010Q3

REPORT INFORMATION
  Report Type: 
  Country: None (occurrence: None)
  Receive Date: 20100920
  Receipt Date: 20100412
  Transmission Date: 20110219
  Serious: Yes (Hospitalization)
  Sender: FDA-Public Use
  Company Number: US-ASTRAZENECA-2009UW07580

PATIENT
  Sex: Female

DRUGS (11)
  1. SEROQUEL [Suspect]
     Indication: IRRITABILITY
     Dosage: 1 TABLET EVERY MORNING AND 4 TABLETS AT BEDTIME
     Route: 048
     Dates: start: 20060321, end: 20060420
  2. SEROQUEL [Suspect]
     Indication: SLEEP DISORDER
     Dosage: 1 TABLET EVERY MORNING AND 4 TABLETS AT BEDTIME
     Route: 048
     Dates: start: 20060321, end: 20060420
  3. SEROQUEL [Suspect]
     Indication: INSOMNIA
     Dosage: 1 TABLET EVERY MORNING AND 4 TABLETS AT BEDTIME
     Route: 048
     Dates: start: 20060321, end: 20060420
  4. ACETAMINOPHEN AND HYDROCODONE BITARTRATE [Concomitant]
     Indication: PAIN
     Dosage: 1 TO 2 TAB EVERY 4 HOURS AS NEEDED, MAX 8 PER DAY
     Route: 048
     Dates: start: 20060328, end: 20060427
  5. KETOCONAZOLE [Concomitant]
     Dosage: 2 TAB ONCE AND REPEAT 1 WEEK.
     Route: 048
     Dates: start: 20050418, end: 20060419
  6. REMERON [Concomitant]
     Indication: SLEEP TERROR
     Dates: start: 20071022
  7. CITALOPRAM HYDROBROMIDE [Concomitant]
     Route: 048
     Dates: start: 20071022
  8. MORPHINE SULFATE [Concomitant]
     Indication: HEADACHE
     Route: 048
     Dates: start: 20071022
  9. MIRTAZAPINE [Concomitant]
     Route: 048
     Dates: start: 20071022
  10. SIMVASTATIN [Concomitant]
     Indication: BLOOD CHOLESTEROL
     Dosage: ONE-HALF TAB AT BEDTIME
     Route: 048
  11. METOPROLOL SUCCINATE [Concomitant]
     Route: 048
     Dates: start: 20071022

REACTIONS (2)
  - DIABETES MELLITUS INADEQUATE CONTROL [None]
  - DIABETIC KETOACIDOSIS [None]
